FAERS Safety Report 9461623 (Version 2)
Quarter: 2013Q3

REPORT INFORMATION
  Report Type: Spontaneous
  Country: US (occurrence: US)
  Receive Date: 20130816
  Receipt Date: 20130903
  Transmission Date: 20140515
  Serious: Yes (Hospitalization)
  Sender: FDA-Public Use
  Company Number: US-PFIZER INC-2013234707

PATIENT
  Age: 72 Year
  Sex: Male
  Weight: 74 kg

DRUGS (16)
  1. ZYVOX [Suspect]
     Indication: OSTEOMYELITIS
     Dosage: 600 MG, 2X/DAY
     Route: 048
     Dates: start: 20130702, end: 20130808
  2. ZYVOX [Suspect]
     Indication: BACTERAEMIA
  3. PERCOCET [Concomitant]
     Dosage: UNK, AS NEEDED
  4. COLACE [Concomitant]
     Dosage: UNK
  5. COMBIVENT [Concomitant]
     Dosage: UNK
  6. CORTISONE [Concomitant]
     Dosage: UNK
  7. GLIPIZIDE [Concomitant]
     Dosage: UNK
  8. ISOSORBIDE [Concomitant]
     Dosage: UNK
  9. POTASSIUM [Concomitant]
     Dosage: UNK
  10. LASIX [Concomitant]
     Dosage: UNK
  11. MAGNESIUM [Concomitant]
     Dosage: UNK
  12. PREDNISONE [Concomitant]
     Dosage: UNK
  13. SIMVASTATIN [Concomitant]
     Dosage: UNK
  14. SYMBICORT [Concomitant]
     Dosage: UNK
  15. XANAX [Concomitant]
     Dosage: UNK
  16. ZANTAC [Concomitant]
     Dosage: UNK

REACTIONS (1)
  - Pancreatitis [Recovered/Resolved]
